FAERS Safety Report 9003429 (Version 1)
Quarter: 2013Q1

REPORT INFORMATION
  Report Type: Spontaneous
  Country: DK (occurrence: DK)
  Receive Date: 20130108
  Receipt Date: 20130108
  Transmission Date: 20140127
  Serious: Yes (Other)
  Sender: FDA-Public Use
  Company Number: DK-GLAXOSMITHKLINE-B0856859A

PATIENT
  Sex: Male

DRUGS (9)
  1. TYVERB [Suspect]
     Indication: BREAST CANCER
     Route: 065
  2. HERCEPTIN [Suspect]
     Indication: BREAST CANCER
     Route: 065
  3. XELODA [Suspect]
     Indication: BREAST CANCER
     Route: 065
  4. CARBOPLATIN [Suspect]
     Indication: BREAST CANCER
     Route: 065
  5. VINORELBINE [Suspect]
     Indication: BREAST CANCER
     Route: 065
  6. TAXOTERE [Suspect]
     Indication: BREAST CANCER
     Route: 065
  7. GEMCITABINE [Suspect]
     Indication: BREAST CANCER
     Route: 065
  8. ERIBULIN MESILATE [Suspect]
     Indication: BREAST CANCER
     Route: 065
  9. TAXOL [Suspect]
     Indication: BREAST CANCER
     Route: 065

REACTIONS (2)
  - Disease progression [Unknown]
  - Metastases to liver [None]
